FAERS Safety Report 7958850-0 (Version None)
Quarter: 2011Q4

REPORT INFORMATION
  Report Type: 
  Country: None (occurrence: None)
  Receive Date: 20111206
  Receipt Date: 20111201
  Transmission Date: 20120403
  Serious: Yes (Other)
  Sender: FDA-Public Use
  Company Number: US-AMGEN-USASP2011059276

PATIENT
  Sex: Male
  Weight: 65.85 kg

DRUGS (2)
  1. NPLATE [Suspect]
     Indication: IDIOPATHIC THROMBOCYTOPENIC PURPURA
     Dosage: 930 MUG, UNK
     Route: 058
     Dates: start: 20110117, end: 20110606
  2. NEUPOGEN [Concomitant]
     Indication: PRODUCT USED FOR UNKNOWN INDICATION
     Dosage: 480 MUG, UNK
     Route: 058
     Dates: start: 20110228, end: 20110609

REACTIONS (1)
  - THROMBOCYTOPENIA [None]
